FAERS Safety Report 16202354 (Version 1)
Quarter: 2019Q2

REPORT INFORMATION
  Report Type: Report from Study
  Country: US (occurrence: US)
  Receive Date: 20190416
  Receipt Date: 20190416
  Transmission Date: 20190711
  Serious: Yes (Other)
  Sender: FDA-Public Use
  Company Number: US-TEVA-2019-US-1034716

PATIENT
  Age: 76 Year
  Sex: Female

DRUGS (3)
  1. AUSTEDO [Suspect]
     Active Substance: DEUTETRABENAZINE
     Indication: TARDIVE DYSKINESIA
     Route: 065
     Dates: start: 20180413
  2. BENZTROPINE. [Concomitant]
     Active Substance: BENZTROPINE
     Route: 065
  3. AUSTEDO [Suspect]
     Active Substance: DEUTETRABENAZINE
     Dosage: 24 MILLIGRAM DAILY;
     Route: 065

REACTIONS (5)
  - Fall [Unknown]
  - Tremor [Unknown]
  - Gait inability [Unknown]
  - Loss of personal independence in daily activities [Unknown]
  - Adverse event [Unknown]

NARRATIVE: CASE EVENT DATE: 201903
